FAERS Safety Report 19274700 (Version 1)
Quarter: 2021Q2

REPORT INFORMATION
  Report Type: Other
  Country: CA (occurrence: CA)
  Receive Date: 20210519
  Receipt Date: 20210519
  Transmission Date: 20210717
  Serious: Yes (Other)
  Sender: FDA-Public Use
  Company Number: CA-APOTEX-2021AP011987

PATIENT
  Age: 65 Year
  Sex: Female

DRUGS (1)
  1. DASATINIB. [Suspect]
     Active Substance: DASATINIB
     Indication: CHRONIC MYELOID LEUKAEMIA
     Dosage: 70 MILLIGRAM, QD
     Route: 065

REACTIONS (5)
  - Drug ineffective [Unknown]
  - Product dose omission issue [Unknown]
  - Thrombocytopenia [Unknown]
  - Malignant neoplasm progression [Unknown]
  - Product supply issue [Unknown]
